FAERS Safety Report 17295622 (Version 3)
Quarter: 2020Q1

REPORT INFORMATION
  Report Type: Spontaneous
  Country: US (occurrence: US)
  Receive Date: 20200121
  Receipt Date: 20200312
  Transmission Date: 20200409
  Serious: No
  Sender: FDA-Public Use
  Company Number: US-VERTEX PHARMACEUTICALS-2020-000509

PATIENT
  Age: 14 Year
  Sex: Male
  Weight: 51 kg

DRUGS (3)
  1. TOBI [Suspect]
     Active Substance: TOBRAMYCIN
     Indication: PSEUDOMONAS INFECTION
  2. CAYSTON [Concomitant]
     Active Substance: AZTREONAM
     Dosage: UNK
  3. TRIKAFTA [Suspect]
     Active Substance: ELEXACAFTOR\IVACAFTOR\TEZACAFTOR
     Indication: CYSTIC FIBROSIS
     Dosage: 100 MG ELEXACAFTOR/ 50 MG TEZACAFTOR/ 75 MG IVACAFTOR AND 150 MG IVACAFTOR (FREQ UNSPEC)
     Route: 048
     Dates: start: 20191217

REACTIONS (4)
  - Epistaxis [Unknown]
  - Productive cough [Unknown]
  - Pseudomonas infection [Unknown]
  - Migraine [Unknown]

NARRATIVE: CASE EVENT DATE: 2019
